FAERS Safety Report 8885735 (Version 6)
Quarter: 2013Q3

REPORT INFORMATION
  Report Type: Report from Study
  Country: FR (occurrence: FR)
  Receive Date: 20121101
  Receipt Date: 20130910
  Transmission Date: 20140515
  Serious: Yes (Other)
  Sender: FDA-Public Use
  Company Number: FR-PFIZER INC-2012268995

PATIENT
  Age: 56 Year
  Sex: Male
  Weight: 101 kg

DRUGS (9)
  1. TEMSIROLIMUS [Suspect]
     Indication: MANTLE CELL LYMPHOMA
     Dosage: 15 MG, DAILY, CYCLE 3
     Dates: start: 20120907
  2. DOXORUBICIN HCL [Suspect]
     Indication: MANTLE CELL LYMPHOMA
     Dosage: CYCLE 3
  3. CYCLOPHOSPHAMIDE [Suspect]
     Indication: MANTLE CELL LYMPHOMA
     Dosage: CYCLE 3
  4. PREDNISOLONE [Suspect]
     Indication: MANTLE CELL LYMPHOMA
     Dosage: CYCLE 3
  5. RITUXIMAB [Suspect]
     Indication: MANTLE CELL LYMPHOMA
     Dosage: CYCLE 3
  6. VINCRISTINE [Suspect]
     Indication: MANTLE CELL LYMPHOMA
     Dosage: CYCLE 3
  7. LISINOPRIL [Concomitant]
     Indication: HYPERTENSION
     Dosage: UNK
  8. CRESTOR [Concomitant]
     Indication: PROPHYLAXIS
     Dosage: UNK
     Dates: start: 201209
  9. AZITHROMYCIN [Concomitant]
     Indication: URINARY TRACT INFECTION
     Dosage: UNK
     Dates: start: 20121015, end: 20121015

REACTIONS (1)
  - Venous thrombosis [Recovered/Resolved]
